FAERS Safety Report 23301660 (Version 1)
Quarter: 2023Q4

REPORT INFORMATION
  Report Type: Spontaneous
  Country: US (occurrence: None)
  Receive Date: 20231214
  Receipt Date: 20231214
  Transmission Date: 20240110
  Serious: Yes (Hospitalization)
  Sender: FDA-Public Use
  Company Number: None

PATIENT
  Age: 41 Year
  Sex: Male

DRUGS (8)
  1. AMBRISENTAN [Suspect]
     Active Substance: AMBRISENTAN
     Indication: Pulmonary hypertension
     Dosage: FREQUENCY : DAILY;?
     Route: 048
     Dates: start: 20210325
  2. TORSEMIDE [Concomitant]
     Active Substance: TORSEMIDE
  3. POTASSIUM [Concomitant]
     Active Substance: POTASSIUM
  4. IRON [Concomitant]
     Active Substance: IRON
  5. UPTRAVI [Concomitant]
     Active Substance: SELEXIPAG
  6. ASPIRIN [Concomitant]
     Active Substance: ASPIRIN
  7. METOPROLOL [Concomitant]
     Active Substance: METOPROLOL
  8. TADALAFIL [Concomitant]
     Active Substance: TADALAFIL

REACTIONS (2)
  - Pulmonary hypertension [None]
  - Intensive care [None]
